FAERS Safety Report 7691324-3 (Version None)
Quarter: 2011Q3

REPORT INFORMATION
  Report Type: 
  Country: None (occurrence: None)
  Receive Date: 20110818
  Receipt Date: 20110816
  Transmission Date: 20111222
  Serious: Yes (Other)
  Sender: FDA-Public Use
  Company Number: AU-ABBOTT-11P-008-0846869-00

PATIENT

DRUGS (1)
  1. HUMIRA [Suspect]
     Indication: RHEUMATOID ARTHRITIS

REACTIONS (4)
  - VERTIGO [None]
  - BALANCE DISORDER [None]
  - DEAFNESS [None]
  - DIZZINESS [None]
